FAERS Safety Report 6417724-7 (Version None)
Quarter: 2009Q4

REPORT INFORMATION
  Report Type: 
  Country: None (occurrence: None)
  Receive Date: 20091026
  Receipt Date: 20091013
  Transmission Date: 20100525
  Serious: Yes (Disabling)
  Sender: FDA-Public Use
  Company Number: ADR39852009

PATIENT
  Age: 60 Year
  Sex: Female

DRUGS (4)
  1. SIMVASTATIN [Suspect]
     Indication: HYPERLIPIDAEMIA
     Dosage: 20 MG ORAL
     Route: 048
     Dates: start: 20071001, end: 20080907
  2. DEVILS CLAE [Concomitant]
  3. GLUCOSAMINE [Concomitant]
  4. SOYA LECTHIN [Concomitant]

REACTIONS (2)
  - ANXIETY [None]
  - PALPITATIONS [None]
